FAERS Safety Report 15678978 (Version 2)
Quarter: 2019Q4

REPORT INFORMATION
  Report Type: Report from Study
  Country: BR (occurrence: BR)
  Receive Date: 20181202
  Receipt Date: 20191206
  Transmission Date: 20200122
  Serious: Yes (Other)
  Sender: FDA-Public Use
  Company Number: BR-BRISTOL-MYERS SQUIBB COMPANY-BMS-2017-077777

PATIENT
  Age: 64 Year
  Sex: Female

DRUGS (2)
  1. DORFLEX [Concomitant]
     Active Substance: CAFFEINE\DIPYRONE\ORPHENADRINE
     Indication: PRODUCT USED FOR UNKNOWN INDICATION
     Route: 065
  2. ABATACEPT [Suspect]
     Active Substance: ABATACEPT
     Indication: RHEUMATOID ARTHRITIS
     Dosage: 500 MG, QMO
     Route: 042
     Dates: start: 201508

REACTIONS (12)
  - Eye infection bacterial [Unknown]
  - Animal bite [Unknown]
  - Asthenia [Unknown]
  - Helicobacter infection [Unknown]
  - Influenza [Recovered/Resolved]
  - Eyelid ptosis [Unknown]
  - Gallbladder disorder [Unknown]
  - Pyrexia [Recovered/Resolved]
  - Varicose vein [Not Recovered/Not Resolved]
  - Tachycardia [Not Recovered/Not Resolved]
  - Aphthous ulcer [Recovering/Resolving]
  - Nausea [Not Recovered/Not Resolved]

NARRATIVE: CASE EVENT DATE: 20180615
